FAERS Safety Report 8188376-3 (Version None)
Quarter: 2012Q1

REPORT INFORMATION
  Report Type: 
  Country: None (occurrence: None)
  Receive Date: 20120306
  Receipt Date: 20120223
  Transmission Date: 20120608
  Serious: Yes (Hospitalization)
  Sender: FDA-Public Use
  Company Number: PHHY2012DE009639

PATIENT
  Age: 54 Year
  Sex: Male

DRUGS (3)
  1. RIOPAN [Concomitant]
  2. DESFERAL [Suspect]
     Indication: HAEMOSIDEROSIS
     Dosage: 3.8 G, QD
     Dates: start: 20120113
  3. ACYCLOVIR [Concomitant]

REACTIONS (2)
  - HYPOKALAEMIA [None]
  - GENERAL PHYSICAL HEALTH DETERIORATION [None]
